FAERS Safety Report 19879708 (Version 1)
Quarter: 2021Q3

REPORT INFORMATION
  Report Type: Spontaneous
  Country: JP (occurrence: JP)
  Receive Date: 20210924
  Receipt Date: 20210924
  Transmission Date: 20211014
  Serious: Yes (Other)
  Sender: FDA-Public Use
  Company Number: JP-PFIZER INC-202101216432

PATIENT
  Sex: Male

DRUGS (1)
  1. PREGABALIN. [Suspect]
     Active Substance: PREGABALIN
     Indication: INTERVERTEBRAL DISC PROTRUSION
     Dosage: 75 MG, 2X/DAY
     Route: 048
     Dates: end: 202108

REACTIONS (5)
  - Arrhythmia [Unknown]
  - Oedema peripheral [Unknown]
  - Palpitations [Unknown]
  - Off label use [Unknown]
  - Hypoaesthesia [Unknown]
